FAERS Safety Report 18448541 (Version 1)
Quarter: 2020Q4

REPORT INFORMATION
  Report Type: Spontaneous
  Country: ES (occurrence: ES)
  Receive Date: 20201031
  Receipt Date: 20201031
  Transmission Date: 20210114
  Serious: Yes (Death, Other)
  Sender: FDA-Public Use
  Company Number: ES-SGP-000007

PATIENT
  Age: 11 Year

DRUGS (5)
  1. SULFAMETHOXAZOLE,TRIMETHOPRIM,AMBROXOL [Concomitant]
     Indication: PNEUMOCYSTIS JIROVECII INFECTION
     Route: 042
  2. TOFACITINIB [Suspect]
     Active Substance: TOFACITINIB
     Indication: INTERSTITIAL LUNG DISEASE
     Route: 065
  3. METHYLPREDNISOLONE. [Suspect]
     Active Substance: METHYLPREDNISOLONE
     Indication: INTERSTITIAL LUNG DISEASE
     Route: 065
  4. IMMUNOGLOBULIN HUMAN NORMAL [Suspect]
     Active Substance: HUMAN IMMUNOGLOBULIN G
     Indication: INTERSTITIAL LUNG DISEASE
     Route: 042
  5. CYCLOPHOSPHAMIDE. [Suspect]
     Active Substance: CYCLOPHOSPHAMIDE
     Indication: INTERSTITIAL LUNG DISEASE
     Route: 065

REACTIONS (6)
  - Emphysema [Fatal]
  - Drug ineffective [Unknown]
  - Pneumomediastinum [Fatal]
  - Respiratory failure [Fatal]
  - Pneumothorax [Fatal]
  - Product use in unapproved indication [Unknown]
